FAERS Safety Report 8807339 (Version 1)
Quarter: 2012Q4

REPORT INFORMATION
  Report Type: 
  Country: TR (occurrence: TR)
  Receive Date: 20120925
  Receipt Date: 20120925
  Transmission Date: 20130627
  Serious: Yes (Hospitalization)
  Sender: FDA-Public Use
  Company Number: TR-WATSON-2012-16210

PATIENT
  Age: 15 Year
  Sex: Male

DRUGS (1)
  1. LAMOTRIGINE (UNKNOWN) [Suspect]
     Indication: TONIC CONVULSION
     Dosage: 4 mg/kg, daily
     Route: 065

REACTIONS (2)
  - Myocarditis [Recovered/Resolved]
  - Pericardial effusion [None]
